FAERS Safety Report 4974561-8 (Version None)
Quarter: 2006Q2

REPORT INFORMATION
  Report Type: 
  Country: None (occurrence: None)
  Receive Date: 20060410
  Receipt Date: 20060329
  Transmission Date: 20061013
  Serious: Yes (Other)
  Sender: FDA-Public Use
  Company Number: 2006044930

PATIENT
  Age: 17 Year
  Sex: Female
  Weight: 69 kg

DRUGS (1)
  1. DEPO-PROVERA [Suspect]
     Indication: CONTRACEPTION
     Dosage: (SINGLE INJECTION)
     Dates: start: 20050428, end: 20050428

REACTIONS (3)
  - ABORTION MISSED [None]
  - DRUG EXPOSURE DURING PREGNANCY [None]
  - PREGNANCY WITH INJECTABLE CONTRACEPTIVE [None]
